FAERS Safety Report 6338345-0 (Version None)
Quarter: 2009Q3

REPORT INFORMATION
  Report Type: 
  Country: None (occurrence: None)
  Receive Date: 20090902
  Receipt Date: 20090819
  Transmission Date: 20100115
  Serious: Yes (Hospitalization)
  Sender: FDA-Public Use
  Company Number: US-BRISTOL-MYERS SQUIBB COMPANY-14763890

PATIENT
  Age: 79 Year
  Sex: Female
  Weight: 63 kg

DRUGS (2)
  1. CETUXIMAB [Suspect]
     Indication: NON-SMALL CELL LUNG CANCER
     Dosage: LOADING DOSE 700MG (400MG/M2) DOSE CHANGED TO 435-452MG THEN TO 438MG
     Route: 042
     Dates: start: 20090424, end: 20090813
  2. PEMETREXED DISODIUM [Suspect]
     Indication: NON-SMALL CELL LUNG CANCER
     Dosage: INITIAL DOSE 870 MG DOSE CORRECTED TO 875MG
     Route: 042
     Dates: start: 20090424, end: 20090813

REACTIONS (1)
  - ATRIAL FIBRILLATION [None]
